FAERS Safety Report 4331930-7 (Version None)
Quarter: 2004Q2

REPORT INFORMATION
  Report Type: 
  Country: None (occurrence: None)
  Receive Date: 20040405
  Receipt Date: 20030512
  Transmission Date: 20050107
  Serious: No
  Sender: FDA-Public Use
  Company Number: US-GLAXOSMITHKLINE-A0408359A

PATIENT
  Age: 68 Year
  Sex: Male

DRUGS (4)
  1. SEREVENT [Suspect]
     Dosage: 2PUFF TWICE PER DAY
     Route: 055
     Dates: start: 20020101
  2. VENTOLIN [Concomitant]
  3. ATROVENT [Concomitant]
  4. FLOVENT [Concomitant]

REACTIONS (4)
  - AGITATION [None]
  - CHEST PAIN [None]
  - GASTROINTESTINAL PAIN [None]
  - PSYCHOMOTOR HYPERACTIVITY [None]
